FAERS Safety Report 9098236 (Version 1)
Quarter: 2013Q1

REPORT INFORMATION
  Report Type: Spontaneous
  Country: BR (occurrence: BR)
  Receive Date: 20130213
  Receipt Date: 20130213
  Transmission Date: 20140127
  Serious: Yes (Other)
  Sender: FDA-Public Use
  Company Number: BR-PFIZER INC-2013052192

PATIENT
  Age: 81 Year
  Sex: Female
  Weight: 63 kg

DRUGS (5)
  1. DETRUSITOL LA [Suspect]
     Dosage: 4 MG, 1X/DAY
     Route: 048
     Dates: start: 20121001
  2. ALOIS [Concomitant]
     Indication: DEMENTIA ALZHEIMER^S TYPE
  3. ANCORON [Concomitant]
     Indication: CARDIAC DISORDER
  4. VYTORIN [Concomitant]
     Indication: CARDIAC DISORDER
  5. EXELON [Concomitant]
     Indication: DEPRESSION
     Dosage: UNK

REACTIONS (2)
  - Musculoskeletal pain [Not Recovered/Not Resolved]
  - Osteoarthritis [Unknown]
